FAERS Safety Report 5427331-0 (Version None)
Quarter: 2007Q3

REPORT INFORMATION
  Report Type: 
  Country: None (occurrence: None)
  Receive Date: 20070828
  Receipt Date: 20070821
  Transmission Date: 20080115
  Serious: Yes (Hospitalization, Other)
  Sender: FDA-Public Use
  Company Number: PHBS2007JP10093

PATIENT
  Age: 54 Year
  Sex: Male
  Weight: 44 kg

DRUGS (4)
  1. TEGRETOL [Suspect]
     Indication: NERVE INJURY
     Dosage: 200 MG, TID
     Route: 048
     Dates: start: 20070423, end: 20070601
  2. FERROMIA [Concomitant]
     Indication: IRON DEFICIENCY ANAEMIA
     Dosage: 100 MG/DAY
     Route: 048
     Dates: start: 20070420
  3. NITRAZEPAM [Concomitant]
     Indication: INSOMNIA
     Dosage: 5 MG/DAY
     Route: 048
     Dates: start: 20070525
  4. NOVORAPID [Concomitant]
     Indication: DIABETES MELLITUS
     Dosage: 26 UG/DAY
     Route: 042
     Dates: start: 20070315

REACTIONS (24)
  - ALANINE AMINOTRANSFERASE INCREASED [None]
  - ASPARTATE AMINOTRANSFERASE INCREASED [None]
  - BLOOD LACTATE DEHYDROGENASE INCREASED [None]
  - CEREBRAL INFARCTION [None]
  - DECREASED APPETITE [None]
  - DERMABRASION [None]
  - DRUG ERUPTION [None]
  - DRY SKIN [None]
  - EFFUSION [None]
  - EOSINOPHIL COUNT INCREASED [None]
  - EPIDERMOLYSIS [None]
  - FLUSHING [None]
  - GAMMA-GLUTAMYLTRANSFERASE INCREASED [None]
  - HOT FLUSH [None]
  - LIP OEDEMA [None]
  - MONOCYTE COUNT INCREASED [None]
  - OEDEMA PERIPHERAL [None]
  - PRURITUS [None]
  - RASH [None]
  - SCAB [None]
  - SKIN EXFOLIATION [None]
  - SKIN OEDEMA [None]
  - SWELLING FACE [None]
  - WHITE BLOOD CELL COUNT INCREASED [None]
